FAERS Safety Report 10090237 (Version 2)
Quarter: 2014Q3

REPORT INFORMATION
  Report Type: Spontaneous
  Country: IT (occurrence: IT)
  Receive Date: 20140421
  Receipt Date: 20140721
  Transmission Date: 20150326
  Serious: Yes (Hospitalization)
  Sender: FDA-Public Use
  Company Number: IT-SA-2014SA050250

PATIENT
  Age: 88 Year
  Sex: Female

DRUGS (7)
  1. SINVACOR [Concomitant]
     Active Substance: SIMVASTATIN
     Dosage: STRENGTH: 10 MG
  2. TRIATEC [Suspect]
     Active Substance: RAMIPRIL
     Indication: HYPERTENSION
     Route: 048
     Dates: start: 20131001, end: 20140130
  3. SEQUACOR [Interacting]
     Active Substance: BISOPROLOL
     Indication: HYPERTENSION
     Dosage: STRENGTH: 2.5 MG
     Route: 048
     Dates: start: 20131001, end: 20140128
  4. LASIX [Interacting]
     Active Substance: FUROSEMIDE
     Indication: HYPERTENSION
     Route: 048
     Dates: start: 20131001, end: 20140130
  5. NORVASC [Concomitant]
     Active Substance: AMLODIPINE BESYLATE
     Dosage: STRENGTH: 5 MG
  6. CARDIOASPIRIN [Concomitant]
     Active Substance: ASPIRIN
     Dosage: STRENGTH: 10 MG
  7. SEQUACOR [Interacting]
     Active Substance: BISOPROLOL
     Indication: MYOCARDIAL ISCHAEMIA
     Dosage: STRENGTH: 2.5 MG
     Route: 048
     Dates: start: 20131001, end: 20140128

REACTIONS (3)
  - Presyncope [Unknown]
  - Drug interaction [Unknown]
  - Sinus bradycardia [Unknown]

NARRATIVE: CASE EVENT DATE: 20140128
